FAERS Safety Report 23509375 (Version 4)
Quarter: 2024Q1

REPORT INFORMATION
  Report Type: Spontaneous
  Country: IT (occurrence: IT)
  Receive Date: 20240210
  Receipt Date: 20240321
  Transmission Date: 20240410
  Serious: Yes (Hospitalization)
  Sender: FDA-Public Use
  Company Number: IT-ROCHE-2194937

PATIENT
  Age: 55 Year
  Sex: Female
  Weight: 70 kg

DRUGS (94)
  1. AROMASIN [Suspect]
     Active Substance: EXEMESTANE
     Indication: HER2 positive breast cancer
     Dosage: MOST RECENT DOSE PRIOR TO AE 09/OCT/2020
     Route: 048
     Dates: start: 20180713
  2. CAPECITABINE [Suspect]
     Active Substance: CAPECITABINE
     Indication: HER2 positive breast cancer
     Dosage: 500 MG, OTHER
     Route: 048
     Dates: start: 20220805, end: 20220824
  3. CARBOPLATIN [Suspect]
     Active Substance: CARBOPLATIN
     Indication: HER2 positive breast cancer
     Dosage: UNK, Q3W (MOST RECENT DOSE PRIOR TO THE EVENT: 27 MAY 2022)
     Route: 042
     Dates: start: 20220204, end: 20220225
  4. CYCLOPHOSPHAMIDE [Suspect]
     Active Substance: CYCLOPHOSPHAMIDE
     Indication: HER2 positive breast cancer
     Dosage: 600 MG/KG, Q3W (MOST RECENT DOSE PRIOR TO AE 20 MAY 2022)
     Route: 042
     Dates: start: 20220315
  5. CYTOXAN [Suspect]
     Active Substance: CYCLOPHOSPHAMIDE
     Indication: HER2 positive breast cancer
     Dosage: MOST RECENT DOSE PRIOR TO AE 20/MAY/2022
     Route: 042
     Dates: start: 20220315
  6. DOCETAXEL [Suspect]
     Active Substance: DOCETAXEL\DOCETAXEL ANHYDROUS
     Indication: HER2 positive breast cancer
     Dosage: MOST RECENT DOSE WAS RECIVED ON 14/APR/2018
     Route: 042
     Dates: start: 20171118
  7. EXEMESTANE [Suspect]
     Active Substance: EXEMESTANE
     Indication: HER2 positive breast cancer
     Dosage: 25 MG,QD (MOST RECENT DOSE PRIOR TO AE 09 OCT 2020)
     Route: 048
     Dates: start: 20180713
  8. FULVESTRANT [Suspect]
     Active Substance: FULVESTRANT
     Indication: HER2 positive breast cancer
     Dosage: 500 MG, TIW (MOST RECENT DOSE PRIOR TO AE 31 DEC 2021)
     Route: 030
     Dates: start: 20210521
  9. FASLODEX [Suspect]
     Active Substance: FULVESTRANT
     Indication: HER2 positive breast cancer
     Dosage: MOST RECENT DOSE PRIOR TO AE 31/DEC/2021
     Route: 030
     Dates: start: 20210521
  10. GEMCITABINE [Suspect]
     Active Substance: GEMCITABINE
     Indication: HER2 positive breast cancer
     Dosage: 800 MG/KG, Q3W (MOST RECENT DOSE PRIOR TO 29 JUL 2022)
     Route: 042
     Dates: start: 20220527
  11. GEMZAR [Suspect]
     Active Substance: GEMCITABINE HYDROCHLORIDE
     Indication: HER2 positive breast cancer
     Dosage: MOST RECENT DOSE PRIOR TO 29/JUL/2022
     Route: 042
     Dates: start: 20220527
  12. HERCEPTIN [Suspect]
     Active Substance: TRASTUZUMAB
     Dosage: 420.000MG TIW
     Route: 042
     Dates: start: 20220527, end: 20220729
  13. HERCEPTIN [Suspect]
     Active Substance: TRASTUZUMAB
     Indication: HER2 positive breast cancer
     Dosage: 6.000MG/KG TIW
     Route: 042
     Dates: start: 20171209, end: 20210521
  14. HERCEPTIN [Suspect]
     Active Substance: TRASTUZUMAB
     Dosage: MOST RECENT DOSE PRIOR TO THE EVENT: 17/JUN/2022
     Route: 042
     Dates: start: 20171118, end: 20171118
  15. PARAPLATIN [Suspect]
     Active Substance: CARBOPLATIN
     Indication: HER2 positive breast cancer
     Dosage: 6AUC
     Route: 042
     Dates: start: 20220204, end: 20220225
  16. PARAPLATIN [Suspect]
     Active Substance: CARBOPLATIN
     Dosage: MOST RECENT DOSE PRIOR TO THE EVENT: 29/JUL/20224AUC
     Route: 042
     Dates: start: 20220527
  17. DOXORUBICIN [Suspect]
     Active Substance: DOXORUBICIN
     Dosage: 60 MG, QW
     Route: 065
     Dates: start: 20220315
  18. DOXORUBICIN [Suspect]
     Active Substance: DOXORUBICIN
     Dosage: 60 MG/KG, Q3W (MOST RECENT DOSE PRIOR TO AE 20 MAY 2022)
     Route: 042
     Dates: start: 20220315
  19. DOXORUBICIN [Suspect]
     Active Substance: DOXORUBICIN
     Indication: HER2 positive breast cancer
     Dosage: 60 MG/KG, Q3W (MOST RECENT DOSE PRIOR TO AE 20 MAY 2022)
     Route: 042
     Dates: start: 20220315
  20. PEMBROLIZUMAB [Suspect]
     Active Substance: PEMBROLIZUMAB
     Indication: HER2 positive breast cancer
     Dosage: 200 MG, Q3W (MOST RECENT DOSE PRIOR TO AE 25 FEB 2022)
     Route: 042
     Dates: start: 20220204
  21. PERJETA [Suspect]
     Active Substance: PERTUZUMAB
     Dosage: 420.000MG TIW
     Route: 042
     Dates: start: 20171209, end: 20200918
  22. PERJETA [Suspect]
     Active Substance: PERTUZUMAB
     Indication: HER2 positive breast cancer
     Dosage: 840.000MG TIW
     Route: 042
     Dates: start: 20171118, end: 20171118
  23. PERTUZUMAB [Suspect]
     Active Substance: PERTUZUMAB
     Dosage: 420 MG, Q3W
     Route: 042
     Dates: start: 20171209, end: 20200918
  24. PERTUZUMAB [Suspect]
     Active Substance: PERTUZUMAB
     Indication: HER2 positive breast cancer
     Dosage: 840 MG, Q3W (MOST RECENT DOSE PRIOR TO THE EVENT: 09 DEC 2017)
     Route: 042
     Dates: start: 20171118, end: 20171118
  25. RIBOCICLIB [Suspect]
     Active Substance: RIBOCICLIB
     Indication: HER2 positive breast cancer
     Dosage: 200MG (MOST RECENT DOSE PRIOR TO AE 14 JAN 2022)
     Route: 048
     Dates: start: 20210618
  26. TALAZOPARIB [Suspect]
     Active Substance: TALAZOPARIB
     Indication: Product used for unknown indication
     Dosage: 1.000MG QD
     Route: 048
     Dates: start: 20201106, end: 20210423
  27. TALAZOPARIB [Suspect]
     Active Substance: TALAZOPARIB
     Indication: HER2 positive breast cancer
  28. TAXOTERE [Suspect]
     Active Substance: DOCETAXEL
     Indication: HER2 positive breast cancer
     Dosage: MOST RECENT DOSE WAS RECIVED ON 14/APR/2018
     Route: 042
     Dates: start: 20171118
  29. TRASTUZUMAB [Suspect]
     Active Substance: TRASTUZUMAB
     Dosage: 420 MG, Q3W
     Route: 042
     Dates: start: 20220527, end: 20220729
  30. TRASTUZUMAB [Suspect]
     Active Substance: TRASTUZUMAB
     Dosage: 6 MG/KG, Q3W
     Route: 042
     Dates: start: 20171209, end: 20210521
  31. TRASTUZUMAB [Suspect]
     Active Substance: TRASTUZUMAB
     Indication: HER2 positive breast cancer
     Dosage: 8 MG/KG, Q3W (MOST RECENT DOSE PRIOR TO THE EVENT: 09 DEC 2017, 27 MAY 2022)
     Route: 042
     Dates: start: 20171118, end: 20171118
  32. XELODA [Suspect]
     Active Substance: CAPECITABINE
     Indication: HER2 positive breast cancer
     Dosage: MOST RECENT DOSE PRIOR TO THE EVENT: 05/AUG/2022
     Route: 048
     Dates: start: 20220805, end: 20220824
  33. ALPRAZOLAM [Concomitant]
     Active Substance: ALPRAZOLAM
     Indication: Product used for unknown indication
     Dosage: ONGOING = CHECKED
     Route: 065
     Dates: start: 20180803
  34. CHLORPHENIRAMINE MALEATE [Concomitant]
     Active Substance: CHLORPHENIRAMINE MALEATE
     Indication: Product used for unknown indication
     Dosage: UNK
     Route: 065
     Dates: start: 20171118
  35. CHLORPHENIRAMINE MALEATE [Concomitant]
     Active Substance: CHLORPHENIRAMINE MALEATE
     Dosage: UNK
     Route: 065
     Dates: start: 20171118
  36. Decapeptyl [Concomitant]
     Indication: Product used for unknown indication
     Dosage: UNK
     Route: 065
     Dates: start: 20180713
  37. PREDNISONE [Concomitant]
     Active Substance: PREDNISONE
     Indication: Product used for unknown indication
     Dosage: 25 MG
     Route: 065
     Dates: start: 20171117, end: 20171229
  38. PREDNISONE [Concomitant]
     Active Substance: PREDNISONE
     Dosage: 25 MG (ONGOING NOT CHECKED)
     Route: 065
     Dates: start: 20171230, end: 20180503
  39. DENOSUMAB [Concomitant]
     Active Substance: DENOSUMAB
     Indication: Product used for unknown indication
     Dosage: ONGOING = CHECKED
     Route: 065
     Dates: start: 20190315
  40. DEXAMETHASONE [Concomitant]
     Active Substance: DEXAMETHASONE
     Dosage: 8.000MG
     Route: 065
     Dates: start: 20171118, end: 20180414
  41. DEXAMETHASONE [Concomitant]
     Active Substance: DEXAMETHASONE
     Dosage: 8.000MG
     Route: 065
     Dates: start: 20171118, end: 20180414
  42. DEXAMETHASONE [Concomitant]
     Active Substance: DEXAMETHASONE
     Indication: Product used for unknown indication
     Dosage: UNK
     Route: 065
     Dates: start: 20171118, end: 20180414
  43. DEXAMETHASONE [Concomitant]
     Active Substance: DEXAMETHASONE
     Dosage: UNK
     Route: 065
     Dates: start: 20171118, end: 20180414
  44. DEXAMETHASONE [Concomitant]
     Active Substance: DEXAMETHASONE
     Dosage: UNK
     Route: 065
     Dates: start: 20171118, end: 20180414
  45. DEXAMETHASONE [Concomitant]
     Active Substance: DEXAMETHASONE
     Dosage: UNK
     Route: 065
     Dates: start: 20171118, end: 20180414
  46. DEXAMETHASONE [Concomitant]
     Active Substance: DEXAMETHASONE
     Route: 065
     Dates: start: 20171118, end: 20180414
  47. DEXAMETHASONE [Concomitant]
     Active Substance: DEXAMETHASONE
     Route: 065
     Dates: start: 20171118, end: 20180414
  48. DEXAMETHASONE [Concomitant]
     Active Substance: DEXAMETHASONE
     Route: 065
     Dates: start: 20171118, end: 20180414
  49. DEXAMETHASONE [Concomitant]
     Active Substance: DEXAMETHASONE
     Route: 065
     Dates: start: 20171118, end: 20180414
  50. DEXAMETHASONE [Concomitant]
     Active Substance: DEXAMETHASONE
     Route: 065
     Dates: start: 20171118, end: 20180414
  51. ECOVALE [Concomitant]
     Indication: Product used for unknown indication
     Dosage: ONGOING = CHECKED
     Route: 065
     Dates: start: 20200424
  52. LANSOPRAZOLE [Concomitant]
     Active Substance: LANSOPRAZOLE
     Indication: Product used for unknown indication
     Dosage: UNK
     Route: 065
     Dates: start: 20171208, end: 20180413
  53. LANSOPRAZOLE [Concomitant]
     Active Substance: LANSOPRAZOLE
     Dosage: UNK
     Route: 065
     Dates: start: 20171118, end: 20180414
  54. LEVOSULPIRIDE [Concomitant]
     Active Substance: LEVOSULPIRIDE
     Indication: Product used for unknown indication
     Dosage: UNK
     Route: 065
     Dates: start: 20171118, end: 20180414
  55. LOPERAMIDE [Concomitant]
     Active Substance: LOPERAMIDE
     Indication: Product used for unknown indication
     Dosage: UNK (ONGOING NOT CHECKED)
     Route: 065
     Dates: start: 20171119, end: 20180302
  56. LORAZEPAM [Concomitant]
     Active Substance: LORAZEPAM
     Indication: Product used for unknown indication
     Dosage: UNK
     Route: 065
  57. DEXAMETHASONE SODIUM PHOSPHATE [Concomitant]
     Active Substance: DEXAMETHASONE PHOSPHATE\DEXAMETHASONE SODIUM PHOSPHATE
     Indication: Product used for unknown indication
     Dosage: ONGOING = CHECKED
     Route: 065
     Dates: start: 20220922
  58. VEA LIPOGEL [Concomitant]
     Dosage: ONGOING = CHECKED
     Route: 065
     Dates: start: 20190215, end: 20211231
  59. VEA LIPOGEL [Concomitant]
     Dosage: ONGOING = CHECKED
     Route: 065
     Dates: start: 20190215, end: 20211231
  60. VEA LIPOGEL [Concomitant]
     Indication: Product used for unknown indication
     Dosage: ONGOING = CHECKED
     Route: 065
     Dates: start: 20190215
  61. VEA LIPOGEL [Concomitant]
     Dosage: ONGOING = CHECKED
     Route: 065
     Dates: start: 20190215
  62. VEA LIPOGEL [Concomitant]
     Dosage: ONGOING = CHECKED
     Route: 065
     Dates: start: 20190215
  63. VEA LIPOGEL [Concomitant]
     Dosage: ONGOING = CHECKED
     Route: 065
     Dates: start: 20190215
  64. VEA LIPOGEL [Concomitant]
     Dosage: ONGOING = CHECKED
     Route: 065
     Dates: start: 20190215
  65. VEA LIPOGEL [Concomitant]
     Dosage: ONGOING = CHECKED
     Route: 065
     Dates: start: 20190215
  66. VEA LIPOGEL [Concomitant]
     Dosage: ONGOING = CHECKED
     Route: 065
     Dates: start: 20190215
  67. VEA LIPOGEL [Concomitant]
     Dosage: ONGOING = CHECKED
     Route: 065
     Dates: start: 20190215
  68. VEA LIPOGEL [Concomitant]
     Dosage: ONGOING = CHECKED
     Route: 065
     Dates: start: 20190215
  69. VEA LIPOGEL [Concomitant]
     Dosage: ONGOING = CHECKED
     Route: 065
     Dates: start: 20190215
  70. VEA LIPOGEL [Concomitant]
     Dosage: ONGOING = CHECKED
     Route: 065
     Dates: start: 20190215
  71. VEA LIPOGEL [Concomitant]
     Dosage: ONGOING = CHECKED
     Route: 065
     Dates: start: 20190215
  72. VEA LIPOGEL [Concomitant]
     Dosage: ONGOING = CHECKED
     Route: 065
     Dates: start: 20190215
  73. VEA LIPOGEL [Concomitant]
     Dosage: ONGOING = CHECKED
     Route: 065
     Dates: start: 20190215
  74. VEA LIPOGEL [Concomitant]
     Dosage: ONGOING = CHECKED
     Route: 065
     Dates: start: 20190215
  75. VEA LIPOGEL [Concomitant]
     Dosage: ONGOING = CHECKED
     Route: 065
     Dates: start: 20190215
  76. VEA LIPOGEL [Concomitant]
     Dosage: ONGOING = CHECKED
     Route: 065
     Dates: start: 20190215
  77. VEA LIPOGEL [Concomitant]
     Dosage: ONGOING = CHECKED
     Route: 065
     Dates: start: 20190215
  78. VEA LIPOGEL [Concomitant]
     Dosage: ONGOING = CHECKED
     Route: 065
     Dates: start: 20190215
  79. VEA LIPOGEL [Concomitant]
     Dosage: ONGOING = CHECKED
     Route: 065
     Dates: start: 20190215
  80. VEA LIPOGEL [Concomitant]
     Dosage: ONGOING = CHECKED
     Route: 065
     Dates: start: 20190215
  81. VEA LIPOGEL [Concomitant]
     Dosage: ONGOING = CHECKED
     Route: 065
     Dates: start: 20190215
  82. VEA LIPOGEL [Concomitant]
     Dosage: ONGOING = CHECKED
     Route: 065
     Dates: start: 20190215
  83. VEA LIPOGEL [Concomitant]
     Dosage: ONGOING = CHECKED
     Route: 065
     Dates: start: 20190215
  84. VEA LIPOGEL [Concomitant]
     Dosage: ONGOING = CHECKED
     Route: 065
     Dates: start: 20190215
  85. VEA LIPOGEL [Concomitant]
     Dosage: ONGOING = CHECKED
     Route: 065
     Dates: start: 20190215
  86. VEA LIPOGEL [Concomitant]
     Dosage: ONGOING = CHECKED
     Route: 065
     Dates: start: 20190215
  87. VEA LIPOGEL [Concomitant]
     Dosage: ONGOING = CHECKED
     Route: 065
     Dates: start: 20190215
  88. VEA LIPOGEL [Concomitant]
     Dosage: ONGOING = CHECKED
     Route: 065
     Dates: start: 20190215
  89. VEA LIPOGEL [Concomitant]
     Dosage: ONGOING = CHECKED
     Route: 065
     Dates: start: 20190215
  90. VEA LIPOGEL [Concomitant]
     Dosage: ONGOING = CHECKED
     Route: 065
     Dates: start: 20190215
  91. VEA LIPOGEL [Concomitant]
     Dosage: ONGOING = CHECKED
     Route: 065
     Dates: start: 20190215
  92. VEA LIPOGEL [Concomitant]
     Dosage: ONGOING = CHECKED
     Route: 065
     Dates: start: 20190215
  93. VEA LIPOGEL [Concomitant]
     Dosage: ONGOING = CHECKED
     Route: 065
     Dates: start: 20190215
  94. VEA LIPOGEL [Concomitant]
     Dosage: ONGOING = CHECKED
     Route: 065
     Dates: start: 20190215

REACTIONS (7)
  - Pneumonia [Recovered/Resolved]
  - Pyrexia [Recovered/Resolved]
  - Rash [Recovered/Resolved]
  - Diarrhoea [Recovered/Resolved]
  - Paraesthesia [Recovered/Resolved]
  - Nail disorder [Recovered/Resolved]
  - Diarrhoea [Recovered/Resolved]

NARRATIVE: CASE EVENT DATE: 20171119
